FAERS Safety Report 13001621 (Version 1)
Quarter: 2016Q4

REPORT INFORMATION
  Report Type: Spontaneous
  Country: US (occurrence: US)
  Receive Date: 20161205
  Receipt Date: 20161205
  Transmission Date: 20170207
  Serious: Yes (Hospitalization)
  Sender: FDA-Public Use
  Company Number: None

PATIENT
  Age: 80 Year
  Sex: Male

DRUGS (14)
  1. ASPIRIN. [Concomitant]
     Active Substance: ASPIRIN
  2. HYDROMORPHONE [Concomitant]
     Active Substance: HYDROMORPHONE
  3. DEXAMETHASONE. [Concomitant]
     Active Substance: DEXAMETHASONE
  4. AMLODIPINE [Concomitant]
     Active Substance: AMLODIPINE BESYLATE
  5. ACYCLOVIR. [Concomitant]
     Active Substance: ACYCLOVIR
  6. OMEPRAZOLE. [Concomitant]
     Active Substance: OMEPRAZOLE
  7. LACTULOSE. [Concomitant]
     Active Substance: LACTULOSE
  8. LENALIDOMIDE [Concomitant]
     Active Substance: LENALIDOMIDE
  9. REVLIMID [Suspect]
     Active Substance: LENALIDOMIDE
     Indication: PLASMA CELL MYELOMA
     Dosage: 10MG DAILY FOR 21 DAYS ORAL
     Route: 048
     Dates: start: 20161012
  10. MULTIVITAMIN [Concomitant]
     Active Substance: VITAMINS
  11. TIOTROPIUM [Concomitant]
     Active Substance: TIOTROPIUM
  12. DOCUSATE [Concomitant]
     Active Substance: DOCUSATE
  13. MORPHINE [Concomitant]
     Active Substance: MORPHINE
  14. ERGOCALCIFEROL. [Concomitant]
     Active Substance: ERGOCALCIFEROL

REACTIONS (2)
  - Acute kidney injury [None]
  - Vomiting [None]

NARRATIVE: CASE EVENT DATE: 20161125
